FAERS Safety Report 5022228-2 (Version None)
Quarter: 2006Q2

REPORT INFORMATION
  Report Type: 
  Country: None (occurrence: None)
  Receive Date: 20060609
  Receipt Date: 20010709
  Transmission Date: 20061013
  Serious: Yes (Disabling)
  Sender: FDA-Public Use
  Company Number: CVBU2001US00919

PATIENT
  Sex: Female

DRUGS (1)
  1. VOLTAREN (NVO) [Suspect]
     Dates: start: 19990630, end: 19990820

REACTIONS (1)
  - EYE DISORDER [None]
